FAERS Safety Report 9539671 (Version 1)
Quarter: 2013Q3

REPORT INFORMATION
  Report Type: Spontaneous
  Country: JP (occurrence: JP)
  Receive Date: 20130920
  Receipt Date: 20130920
  Transmission Date: 20140515
  Serious: Yes (Other)
  Sender: FDA-Public Use
  Company Number: JP-ROXANE LABORATORIES, INC.-2013-RO-01538RO

PATIENT
  Age: 18 Year
  Sex: Female

DRUGS (1)
  1. CYCLOPHOSPHAMIDE TABLETS USP [Suspect]
     Indication: SYSTEMIC SCLEROSIS

REACTIONS (1)
  - Drug eruption [Unknown]
